FAERS Safety Report 6768857-7 (Version None)
Quarter: 2010Q2

REPORT INFORMATION
  Report Type: 
  Country: None (occurrence: None)
  Receive Date: 20100611
  Receipt Date: 20100603
  Transmission Date: 20101027
  Serious: Yes (Hospitalization)
  Sender: FDA-Public Use
  Company Number: 013327

PATIENT
  Sex: Female
  Weight: 87 kg

DRUGS (12)
  1. CERTOLIZUMAB PEGOL (CERTOLIZUMAB PEGOL) [Suspect]
     Indication: RHEUMATOID ARTHRITIS
     Dosage: (400 MG 1X/2 WEEKS SUBCUTANEOUS)
     Route: 058
     Dates: start: 20100504, end: 20100531
  2. PREDNISOLONE [Concomitant]
  3. CELEBREX [Concomitant]
  4. TORSEMIDE [Concomitant]
  5. METOPROLOL [Concomitant]
  6. RAMIPRIL [Concomitant]
  7. ASPIRIN [Concomitant]
  8. OXAZEPAM [Concomitant]
  9. CALCIUM CARBONATE [Concomitant]
  10. COLECALCIFEROL [Concomitant]
  11. NEXIUM [Concomitant]
  12. SIMVASTATIN [Concomitant]

REACTIONS (2)
  - BLISTER [None]
  - NECROSIS [None]
